FAERS Safety Report 7144993-0 (Version None)
Quarter: 2010Q4

REPORT INFORMATION
  Report Type: 
  Country: None (occurrence: None)
  Receive Date: 20101208
  Receipt Date: 20101202
  Transmission Date: 20110411
  Serious: Yes (Hospitalization)
  Sender: FDA-Public Use
  Company Number: PT-BRISTOL-MYERS SQUIBB COMPANY-15375298

PATIENT
  Age: 30 Year
  Sex: Female

DRUGS (5)
  1. ARIPIPRAZOLE [Suspect]
     Route: 048
     Dates: start: 20081101
  2. LORAZEPAM [Suspect]
  3. TOPIRAMATE [Suspect]
  4. SERTRALINE HYDROCHLORIDE [Suspect]
     Dosage: DOSE INCREASED TO 150 MG
  5. FLUOXETINE HYDROCHLORIDE [Suspect]

REACTIONS (5)
  - ANXIETY [None]
  - LIBIDO DECREASED [None]
  - OVERDOSE [None]
  - PSYCHOTIC DISORDER [None]
  - WEIGHT DECREASED [None]
